FAERS Safety Report 21834468 (Version 2)
Quarter: 2023Q4

REPORT INFORMATION
  Report Type: Spontaneous
  Country: US (occurrence: None)
  Receive Date: 20230108
  Receipt Date: 20231219
  Transmission Date: 20240109
  Serious: No
  Sender: FDA-Public Use
  Company Number: US-ROCHE-3209849

PATIENT
  Age: 22 Year
  Sex: Male

DRUGS (2)
  1. HEMLIBRA [Suspect]
     Active Substance: EMICIZUMAB-KXWH
     Indication: Factor VIII deficiency
     Dosage: YES
     Route: 058
     Dates: start: 20221012
  2. HEMLIBRA [Suspect]
     Active Substance: EMICIZUMAB-KXWH
     Route: 058
     Dates: start: 201810

REACTIONS (3)
  - Arthralgia [Unknown]
  - Haemorrhage [Recovered/Resolved]
  - Haemarthrosis [Unknown]

NARRATIVE: CASE EVENT DATE: 20230504
